FAERS Safety Report 9059888 (Version 2)
Quarter: 2013Q1

REPORT INFORMATION
  Report Type: Spontaneous
  Country: US (occurrence: US)
  Receive Date: 20130212
  Receipt Date: 20130226
  Transmission Date: 20140127
  Serious: Yes (Hospitalization, Other)
  Sender: FDA-Public Use
  Company Number: US-BRISTOL-MYERS SQUIBB COMPANY-17366105

PATIENT
  Age: 64 Year
  Sex: Female
  Weight: 81 kg

DRUGS (17)
  1. METFORMIN HCL [Suspect]
     Indication: TYPE 2 DIABETES MELLITUS
     Dosage: TO 20MAY2009 + 21MAY2009 TO 22FEB2010, INTER: 23-FEB-2010 + FROM 26-FEB-2010 TO 21-MAR-2010
     Route: 048
     Dates: start: 1997
  2. ETANERCEPT [Concomitant]
     Indication: PSORIATIC ARTHROPATHY
     Route: 030
  3. HYDROCHLOROTHIAZIDE [Concomitant]
     Indication: HYPERTENSION
     Route: 048
     Dates: start: 1990
  4. AMITRIPTYLINE [Concomitant]
     Indication: PSORIATIC ARTHROPATHY
     Route: 048
     Dates: start: 1996
  5. ATORVASTATIN [Concomitant]
     Indication: HYPERLIPIDAEMIA
     Route: 048
     Dates: start: 1998
  6. ASPIRIN [Concomitant]
     Indication: THROMBOSIS PROPHYLAXIS
     Route: 048
     Dates: start: 1998
  7. MULTIVITAMIN [Concomitant]
     Indication: SUPPLEMENTATION THERAPY
     Route: 048
     Dates: start: 1990
  8. FISH OIL [Concomitant]
     Indication: HYPERLIPIDAEMIA
     Dosage: TAB
     Route: 048
     Dates: start: 2006
  9. OMEPRAZOLE [Concomitant]
     Indication: GASTROOESOPHAGEAL REFLUX DISEASE
     Dosage: TAB
     Route: 048
     Dates: start: 2007
  10. NAPROXEN [Concomitant]
     Indication: PSORIATIC ARTHROPATHY
     Route: 048
     Dates: start: 1997
  11. ATENOLOL [Concomitant]
     Indication: HYPERTENSION
     Route: 048
     Dates: start: 20090514
  12. VICODIN [Concomitant]
     Indication: NEUROPATHY PERIPHERAL
     Route: 048
     Dates: start: 1997
  13. GABAPENTIN [Concomitant]
     Indication: NEUROPATHY PERIPHERAL
     Dosage: 300MG:28SEP09-01NOV09,02NOV09-ONG
     Route: 048
     Dates: start: 20090928
  14. ENBREL [Concomitant]
     Indication: PSORIATIC ARTHROPATHY
     Dosage: 7.1429 MG
     Route: 048
     Dates: start: 2001
  15. OMEPRAZOLE [Concomitant]
     Indication: GASTROOESOPHAGEAL REFLUX DISEASE
     Route: 048
     Dates: start: 2007
  16. NAPROXEN [Concomitant]
     Indication: PSORIATIC ARTHROPATHY
     Route: 048
     Dates: start: 1997
  17. ATENOLOL [Concomitant]
     Indication: HYPERTENSION
     Route: 048
     Dates: start: 20090514

REACTIONS (1)
  - Colitis [Recovered/Resolved]
